FAERS Safety Report 12634834 (Version 1)
Quarter: 2016Q3

REPORT INFORMATION
  Report Type: Spontaneous
  Country: US (occurrence: US)
  Receive Date: 20160808
  Receipt Date: 20160808
  Transmission Date: 20161109
  Serious: No
  Sender: FDA-Public Use
  Company Number: US-WARNER CHILCOTT, LLC-1056013

PATIENT
  Sex: Female

DRUGS (2)
  1. ASACOL HD [Suspect]
     Active Substance: MESALAMINE
     Route: 048
  2. DELZICOL [Suspect]
     Active Substance: MESALAMINE
     Route: 048

REACTIONS (3)
  - Oesophageal pain [Unknown]
  - Foreign body [Unknown]
  - Drug ineffective [Unknown]
